FAERS Safety Report 4475243-1 (Version None)
Quarter: 2004Q3

REPORT INFORMATION
  Report Type: 
  Country: None (occurrence: None)
  Receive Date: 20040923
  Receipt Date: 20040625
  Transmission Date: 20050211
  Serious: No
  Sender: FDA-Public Use
  Company Number: USA040671064

PATIENT
  Age: 59 Year
  Sex: Female
  Weight: 96 kg

DRUGS (9)
  1. FORTEO [Suspect]
     Indication: OSTEOPOROSIS
     Dosage: 20 UG/1 DAY
     Dates: start: 20040615
  2. PRILOSEC [Concomitant]
  3. DILANTIN [Concomitant]
  4. TAGAMET [Concomitant]
  5. CLONOPIN (CLONAZEPAM) [Concomitant]
  6. TETRACYCLINE [Concomitant]
  7. VITAMIN B-12 [Concomitant]
  8. MULTIVITAMIN [Concomitant]
  9. CALCIUM [Concomitant]

REACTIONS (2)
  - INJECTION SITE DERMATITIS [None]
  - INJECTION SITE HAEMORRHAGE [None]
